FAERS Safety Report 4652462-2 (Version None)
Quarter: 2005Q2

REPORT INFORMATION
  Report Type: 
  Country: None (occurrence: None)
  Receive Date: 20050502
  Receipt Date: 20050425
  Transmission Date: 20051028
  Serious: Yes (Life-Threatening, Hospitalization)
  Sender: FDA-Public Use
  Company Number: 20052219

PATIENT

DRUGS (1)
  1. LIORESAL [Suspect]
     Indication: MUSCLE SPASTICITY
     Dosage: MCG, DAILY, INTRATHECAL
     Route: 037

REACTIONS (8)
  - AMNESIA [None]
  - COMA [None]
  - CONFUSIONAL STATE [None]
  - CONVULSION [None]
  - HYPERTONIA [None]
  - HYPOTENSION [None]
  - RESPIRATORY DISORDER [None]
  - SHOCK [None]
